FAERS Safety Report 8530704-0 (Version None)
Quarter: 2012Q3

REPORT INFORMATION
  Report Type: 
  Country: None (occurrence: None)
  Receive Date: 20120723
  Receipt Date: 20120713
  Transmission Date: 20120928
  Serious: Yes (Hospitalization)
  Sender: FDA-Public Use
  Company Number: TW-ROCHE-1066447

PATIENT
  Sex: Female
  Weight: 50.35 kg

DRUGS (5)
  1. COPEGUS [Suspect]
     Indication: HEPATITIS C
     Dates: start: 20110923, end: 20111023
  2. PEGASYS [Suspect]
     Indication: HEPATITIS C
     Route: 058
     Dates: start: 20110923
  3. ACETAMINOPHEN [Concomitant]
     Dates: start: 20110930, end: 20111112
  4. ESTAZOLAM [Concomitant]
     Dates: start: 20110930, end: 20111112
  5. BLINDED ALISPORIVIR [Suspect]
     Indication: HEPATITIS C
     Route: 048
     Dates: start: 20110923

REACTIONS (3)
  - VERTIGO [None]
  - ANAEMIA [None]
  - DIZZINESS [None]
